FAERS Safety Report 22691832 (Version 2)
Quarter: 2024Q1

REPORT INFORMATION
  Report Type: Spontaneous
  Country: CN (occurrence: CN)
  Receive Date: 20230711
  Receipt Date: 20240213
  Transmission Date: 20240409
  Serious: Yes (Other)
  Sender: FDA-Public Use
  Company Number: CN-PFIZER INC-PV202300119818

PATIENT
  Age: 30 Year
  Sex: Female
  Weight: 66 kg

DRUGS (3)
  1. HEMABATE [Suspect]
     Active Substance: CARBOPROST TROMETHAMINE
     Indication: Uterine hypotonus
     Dosage: 250 UG, 1X/DAY
     Route: 030
     Dates: start: 20230703, end: 20230703
  2. SODIUM CHLORIDE [Concomitant]
     Active Substance: SODIUM CHLORIDE
     Indication: Uterine hypotonus
     Dosage: 500 ML, 1X/DAY
     Route: 041
     Dates: start: 20230703, end: 20230703
  3. OXYTOCIN [Concomitant]
     Active Substance: OXYTOCIN
     Indication: Uterine hypotonus
     Dosage: 20 IU, 1X/DAY
     Route: 041
     Dates: start: 20230703, end: 20230703

REACTIONS (3)
  - Abdominal pain upper [Recovered/Resolved]
  - Vomiting [Recovered/Resolved]
  - Off label use [Unknown]

NARRATIVE: CASE EVENT DATE: 20230703
